FAERS Safety Report 10066365 (Version 1)
Quarter: 2014Q2

REPORT INFORMATION
  Report Type: Spontaneous
  Country: US (occurrence: US)
  Receive Date: 20140408
  Receipt Date: 20140408
  Transmission Date: 20141212
  Serious: No
  Sender: FDA-Public Use
  Company Number: US-ASTRAZENECA-2014SE05659

PATIENT
  Age: 85 Year
  Sex: Male

DRUGS (2)
  1. BRILINTA [Suspect]
     Indication: ACUTE MYOCARDIAL INFARCTION
     Route: 048
  2. BLOOD PRESSURE LOWERING MEDICATIONS [Concomitant]

REACTIONS (3)
  - Dizziness [Unknown]
  - Fall [Unknown]
  - Contusion [Unknown]
